FAERS Safety Report 21895449 (Version 1)
Quarter: 2023Q1

REPORT INFORMATION
  Report Type: Spontaneous
  Country: US (occurrence: US)
  Receive Date: 20230123
  Receipt Date: 20230123
  Transmission Date: 20230417
  Serious: Yes (Other)
  Sender: FDA-Public Use
  Company Number: US-LUPIN PHARMACEUTICALS INC.-2023-00292

PATIENT

DRUGS (2)
  1. QUINAPRIL [Suspect]
     Active Substance: QUINAPRIL
     Indication: Hypertension
     Dosage: 1 DOSAGE FORM, QD (MANY YEARS)
     Route: 065
  2. QUINAPRIL [Suspect]
     Active Substance: QUINAPRIL
     Dosage: 1 DOSAGE FORM, QD
     Route: 065

REACTIONS (4)
  - Lymphoma [Unknown]
  - Arthropathy [Unknown]
  - Nerve injury [Unknown]
  - Recalled product administered [Unknown]

NARRATIVE: CASE EVENT DATE: 20170101
